FAERS Safety Report 9601647 (Version 1)
Quarter: 2013Q4

REPORT INFORMATION
  Report Type: Spontaneous
  Country: US (occurrence: US)
  Receive Date: 20131007
  Receipt Date: 20131007
  Transmission Date: 20140711
  Serious: No
  Sender: FDA-Public Use
  Company Number: US-009507513-1309USA005668

PATIENT
  Sex: Female

DRUGS (6)
  1. ASMANEX TWISTHALER [Suspect]
     Indication: ASTHMA
     Dosage: ONE PUFF ONCE DAILY
     Route: 055
     Dates: start: 20130610
  2. SINGULAIR [Concomitant]
     Dosage: 10 MG, ONCE DAILY
     Route: 048
  3. LIPITOR [Concomitant]
     Dosage: 20 MG, ONCE DAILY
  4. AVAPRO [Concomitant]
     Dosage: 150 MG, ONCE DAILY
  5. SYNTHROID [Concomitant]
     Dosage: 150 MG, ONCE DAILY
  6. BONIVA [Concomitant]
     Dosage: 150 MG, ONCE DAILY

REACTIONS (1)
  - Arthralgia [Not Recovered/Not Resolved]
